FAERS Safety Report 11547886 (Version 1)
Quarter: 2015Q3

REPORT INFORMATION
  Report Type: Spontaneous
  Country: US (occurrence: US)
  Receive Date: 20150924
  Receipt Date: 20150924
  Transmission Date: 20151125
  Serious: No
  Sender: FDA-Public Use
  Company Number: US-AMNEAL PHARMACEUTICALS-2015AMN00013

PATIENT
  Age: 77 Year
  Sex: Female
  Weight: 87.98 kg

DRUGS (3)
  1. GABAPENTIN. [Suspect]
     Active Substance: GABAPENTIN
     Dosage: 1 CAPSULES, 1X/DAY
     Route: 048
     Dates: start: 201505, end: 201505
  2. LYRICA [Concomitant]
     Active Substance: PREGABALIN
  3. GABAPENTIN. [Suspect]
     Active Substance: GABAPENTIN
     Indication: NEUROPATHY PERIPHERAL
     Dosage: 1 CAPSULES, 1X/DAY
     Route: 048
     Dates: start: 201505, end: 201505

REACTIONS (4)
  - Drug ineffective [Recovered/Resolved]
  - Hallucination [Recovered/Resolved]
  - Dizziness [Recovered/Resolved]
  - Amnesia [Recovered/Resolved]

NARRATIVE: CASE EVENT DATE: 201505
